FAERS Safety Report 18794186 (Version 1)
Quarter: 2021Q1

REPORT INFORMATION
  Report Type: Spontaneous
  Country: US (occurrence: US)
  Receive Date: 20210126
  Receipt Date: 20210126
  Transmission Date: 20210419
  Serious: No
  Sender: FDA-Public Use
  Company Number: None

PATIENT
  Sex: Female

DRUGS (1)
  1. HUMIRA [Suspect]
     Active Substance: ADALIMUMAB
     Indication: RHEUMATOID ARTHRITIS
     Route: 058
     Dates: start: 20201106, end: 20210125

REACTIONS (8)
  - Chest pain [None]
  - Oxygen saturation decreased [None]
  - Vertigo [None]
  - Dyspnoea [None]
  - Rash [None]
  - Syncope [None]
  - Drug hypersensitivity [None]
  - Skin exfoliation [None]
